FAERS Safety Report 10190877 (Version 3)
Quarter: 2016Q1

REPORT INFORMATION
  Report Type: Report from Study
  Country: US (occurrence: US)
  Receive Date: 20140523
  Receipt Date: 20160204
  Transmission Date: 20160525
  Serious: Yes (Hospitalization, Other)
  Sender: FDA-Public Use
  Company Number: US-AMGEN-USASP2014037723

PATIENT
  Age: 68 Year
  Sex: Female

DRUGS (3)
  1. MOBIC [Suspect]
     Active Substance: MELOXICAM
     Indication: PRODUCT USED FOR UNKNOWN INDICATION
     Dosage: UNK
     Route: 065
  2. ENBREL [Suspect]
     Active Substance: ETANERCEPT
     Indication: RHEUMATOID ARTHRITIS
     Dosage: 25 MG, 2 TIMES/WK
     Route: 065
  3. METHOTREXATE [Suspect]
     Active Substance: METHOTREXATE
     Indication: PRODUCT USED FOR UNKNOWN INDICATION
     Dosage: UNK
     Route: 065

REACTIONS (11)
  - Cardiac operation [Unknown]
  - Mass excision [Unknown]
  - Vascular graft [Unknown]
  - Nasopharyngitis [Not Recovered/Not Resolved]
  - Pulmonary hypertension [Unknown]
  - Pneumonia [Recovered/Resolved]
  - Atrial fibrillation [Unknown]
  - Rhinorrhoea [Not Recovered/Not Resolved]
  - Immune system disorder [Unknown]
  - Cough [Not Recovered/Not Resolved]
  - Throat irritation [Not Recovered/Not Resolved]

NARRATIVE: CASE EVENT DATE: 2011
